FAERS Safety Report 16383161 (Version 1)
Quarter: 2019Q2

REPORT INFORMATION
  Report Type: Spontaneous
  Country: US (occurrence: US)
  Receive Date: 20190515
  Receipt Date: 20190515
  Transmission Date: 20190711
  Serious: Yes (Life-Threatening, Other)
  Sender: FDA-Public Use
  Company Number: None

PATIENT
  Age: 61 Year
  Sex: Female
  Weight: 54.45 kg

DRUGS (1)
  1. WIXELA INHUB [Suspect]
     Active Substance: FLUTICASONE PROPIONATE\SALMETEROL XINAFOATE
     Indication: ASTHMA
     Dosage: DOSE: 1 UNK - UNKNOWN
     Route: 055
     Dates: start: 20190511, end: 20190511

REACTIONS (4)
  - Swelling face [None]
  - Paraesthesia oral [None]
  - Lip swelling [None]
  - Pruritus [None]

NARRATIVE: CASE EVENT DATE: 20190511
